FAERS Safety Report 25242885 (Version 1)
Quarter: 2025Q2

REPORT INFORMATION
  Report Type: Spontaneous
  Country: CN (occurrence: CN)
  Receive Date: 20250427
  Receipt Date: 20250427
  Transmission Date: 20250717
  Serious: Yes (Other)
  Sender: BAUSCH AND LOMB
  Company Number: CN-Bausch and Lomb-2025BNL007007

PATIENT
  Age: 80 Year
  Sex: Female
  Weight: 65 kg

DRUGS (4)
  1. TIMOLOL MALEATE [Suspect]
     Active Substance: TIMOLOL MALEATE
     Indication: Intraocular pressure increased
     Dosage: STRENGTH: 5ML:25MG
     Route: 047
     Dates: start: 20250414, end: 20250416
  2. PILOCARPINE NITRATE [Suspect]
     Active Substance: PILOCARPINE NITRATE
     Indication: Intraocular pressure increased
     Dosage: STRENGTH:5ML:0.1G
     Route: 047
     Dates: start: 20250414, end: 20250417
  3. PILOCARPINE NITRATE [Suspect]
     Active Substance: PILOCARPINE NITRATE
     Indication: Product use in unapproved indication
     Route: 047
     Dates: start: 20250417
  4. BRINZOLAMIDE [Suspect]
     Active Substance: BRINZOLAMIDE
     Indication: Intraocular pressure increased
     Route: 047
     Dates: start: 20250414, end: 20250417

REACTIONS (9)
  - Blood pressure increased [Recovering/Resolving]
  - Abdominal pain [Recovering/Resolving]
  - Discomfort [Recovering/Resolving]
  - Vomiting [Recovered/Resolved]
  - Nausea [Recovering/Resolving]
  - Heart rate decreased [Recovering/Resolving]
  - Diarrhoea [Recovering/Resolving]
  - Dizziness [Recovering/Resolving]
  - Product use in unapproved indication [Unknown]

NARRATIVE: CASE EVENT DATE: 20250401
